FAERS Safety Report 14461251 (Version 2)
Quarter: 2019Q1

REPORT INFORMATION
  Report Type: Other
  Country: US (occurrence: US)
  Receive Date: 20180130
  Receipt Date: 20190126
  Transmission Date: 20190417
  Serious: No
  Sender: FDA-Public Use
  Company Number: US-ACORDA-ACO_142508_2017

PATIENT

DRUGS (1)
  1. AMPYRA [Suspect]
     Active Substance: DALFAMPRIDINE
     Indication: MULTIPLE SCLEROSIS
     Dosage: 10 MG, Q 12 HRS
     Route: 048
     Dates: start: 20170929, end: 20170930

REACTIONS (4)
  - Feeling abnormal [Recovered/Resolved]
  - Mobility decreased [Recovered/Resolved]
  - Asthenia [Recovered/Resolved]
  - Loss of personal independence in daily activities [Recovered/Resolved]

NARRATIVE: CASE EVENT DATE: 20170930
